FAERS Safety Report 10228973 (Version 4)
Quarter: 2015Q1

REPORT INFORMATION
  Report Type: Spontaneous
  Country: JP (occurrence: JP)
  Receive Date: 20140610
  Receipt Date: 20150129
  Transmission Date: 20150720
  Serious: Yes (Death, Other)
  Sender: FDA-Public Use
  Company Number: JP-GLAXOSMITHKLINE-B1001108A

PATIENT
  Sex: Female

DRUGS (13)
  1. NEXIUM [Concomitant]
     Active Substance: ESOMEPRAZOLE MAGNESIUM
     Dosage: 20 MG, QD
     Dates: start: 20140508, end: 20140529
  2. MUCODYNE [Concomitant]
     Active Substance: CARBOCYSTEINE
     Dosage: 500 MG, TID
     Dates: start: 20140404, end: 20140529
  3. ASTOMIN [Concomitant]
     Active Substance: DIMEMORFAN
     Dosage: 10 MG, TID
     Dates: start: 20140417, end: 20140430
  4. REBAMIPIDE [Concomitant]
     Active Substance: REBAMIPIDE
     Dosage: 100 MG, TID
     Dates: start: 20140524, end: 20140529
  5. AMLODIPINE [Concomitant]
     Active Substance: AMLODIPINE BESYLATE
     Dosage: 5 MG, QD
     Dates: end: 20140529
  6. OXINORM [Concomitant]
     Active Substance: OXYCODONE HYDROCHLORIDE
     Dosage: 5 MG, PRN
     Dates: start: 20140530, end: 20140601
  7. PAZOPANIB [Suspect]
     Active Substance: PAZOPANIB
     Indication: MALIGNANT FIBROUS HISTIOCYTOMA
     Dosage: UNK
     Route: 048
     Dates: start: 20140516, end: 20140531
  8. LYRICA [Concomitant]
     Active Substance: PREGABALIN
     Indication: PAIN
     Dosage: 75 MG, BID
     Dates: start: 20140501, end: 20140529
  9. BENIDIPINE HYDROCHLORIDE [Concomitant]
     Active Substance: BENIDIPINE HYDROCHLORIDE
     Dosage: 4 MG, QD
     Dates: end: 20140529
  10. LOXOPROFEN [Concomitant]
     Active Substance: LOXOPROFEN
     Indication: PAIN
     Dosage: 60 MG, PRN
     Dates: start: 201402
  11. MAGMITT [Concomitant]
     Active Substance: MAGNESIUM OXIDE
     Indication: CONSTIPATION
     Dosage: 330 MG, TID
     Dates: start: 20140501, end: 20140529
  12. BROCIN CODEINE [Concomitant]
     Active Substance: CODEINE PHOSPHATE\PRUNUS SEROTINA BARK
     Dosage: 2 ML, TID
     Dates: start: 20140501, end: 20140529
  13. AMBROXOL HYDROCHLORIDE L [Concomitant]
     Active Substance: AMBROXOL HYDROCHLORIDE
     Dosage: 45 MG, QD
     Dates: start: 20140515, end: 20140529

REACTIONS (7)
  - Dyspnoea exertional [Unknown]
  - Respiratory failure [Fatal]
  - Acute respiratory distress syndrome [Fatal]
  - Dyspnoea [Unknown]
  - Atelectasis [Unknown]
  - Chest pain [Unknown]
  - Computerised tomogram thorax abnormal [Unknown]
